FAERS Safety Report 7588538-X (Version None)
Quarter: 2011Q3

REPORT INFORMATION
  Report Type: 
  Country: None (occurrence: None)
  Receive Date: 20110705
  Receipt Date: 20110701
  Transmission Date: 20111222
  Serious: Yes (Other)
  Sender: FDA-Public Use
  Company Number: US-AMGEN-USASP2011033714

PATIENT
  Sex: Female
  Weight: 102.49 kg

DRUGS (1)
  1. NPLATE [Suspect]
     Indication: IDIOPATHIC THROMBOCYTOPENIC PURPURA
     Dates: start: 20110501

REACTIONS (2)
  - WEIGHT INCREASED [None]
  - PLATELET COUNT ABNORMAL [None]
